FAERS Safety Report 6297133-4 (Version None)
Quarter: 2009Q3

REPORT INFORMATION
  Report Type: 
  Country: None (occurrence: None)
  Receive Date: 20090724
  Receipt Date: 20090507
  Transmission Date: 20100115
  Serious: Yes (Hospitalization)
  Sender: FDA-Public Use
  Company Number: 2008BI032906

PATIENT
  Age: 45 Year
  Sex: Male
  Weight: 90.7194 kg

DRUGS (13)
  1. TYSABRI [Suspect]
     Indication: MULTIPLE SCLEROSIS
     Dosage: 300 MG; QM; IV
     Route: 042
     Dates: start: 20081126, end: 20081126
  2. FOSAMAX [Concomitant]
  3. FENTANYL [Concomitant]
  4. LISINOPRIL [Concomitant]
  5. LYRICA [Concomitant]
  6. ZANAFLEX [Concomitant]
  7. ATIVAN [Concomitant]
  8. PERCOCET [Concomitant]
  9. NEXIUM [Concomitant]
  10. LORTAB [Concomitant]
  11. KLONOPIN [Concomitant]
  12. OXYCONTIN [Concomitant]
  13. COPAXONE [Concomitant]

REACTIONS (1)
  - PNEUMONIA PRIMARY ATYPICAL [None]
